FAERS Safety Report 5383212-2 (Version None)
Quarter: 2007Q3

REPORT INFORMATION
  Report Type: 
  Country: None (occurrence: None)
  Receive Date: 20070710
  Receipt Date: 20070628
  Transmission Date: 20080115
  Serious: Yes (Other)
  Sender: FDA-Public Use
  Company Number: US-PFIZER INC-2007053871

PATIENT
  Sex: Female
  Weight: 68.181 kg

DRUGS (5)
  1. LYRICA [Suspect]
     Indication: PAIN
     Dates: start: 20061201, end: 20070627
  2. LYRICA [Suspect]
     Indication: ANXIETY
  3. MULTIVITAMIN [Concomitant]
  4. MORPHINE [Concomitant]
  5. CLONAZEPAM [Concomitant]

REACTIONS (6)
  - BLOOD IRON DECREASED [None]
  - BLOOD POTASSIUM DECREASED [None]
  - BONE PAIN [None]
  - MUSCLE SPASMS [None]
  - MYALGIA [None]
  - RESTLESS LEGS SYNDROME [None]
